FAERS Safety Report 13160176 (Version 3)
Quarter: 2017Q1

REPORT INFORMATION
  Report Type: Spontaneous
  Country: JP (occurrence: JP)
  Receive Date: 20170127
  Receipt Date: 20170222
  Transmission Date: 20170428
  Serious: Yes (Other)
  Sender: FDA-Public Use
  Company Number: JP-BAXALTA-2017BXJ000599AA

PATIENT
  Age: 25 Year
  Sex: Male
  Weight: 54 kg

DRUGS (3)
  1. ADVATE [Concomitant]
     Active Substance: ANTIHEMOPHILIC FACTOR, HUMAN RECOMBINANT
     Indication: FACTOR VIII DEFICIENCY
     Route: 042
  2. ADYNOVATE [Suspect]
     Active Substance: ANTIHEMOPHILIC FACTOR, HUMAN RECOMBINANT
     Indication: FACTOR VIII DEFICIENCY
     Dosage: 2000 IU, 2X A WEEK, PROPHYLAXIS
     Route: 042
     Dates: start: 20160910, end: 20170203
  3. ADYNOVATE [Suspect]
     Active Substance: ANTIHEMOPHILIC FACTOR, HUMAN RECOMBINANT
     Indication: FACTOR VIII DEFICIENCY
     Dosage: 1000 IU, 2X A WEEK, PROPHYLAXIS
     Route: 042
     Dates: start: 20160910, end: 20170203

REACTIONS (1)
  - Factor VIII inhibition [Recovered/Resolved]

NARRATIVE: CASE EVENT DATE: 20170106
